FAERS Safety Report 14907919 (Version 1)
Quarter: 2018Q2

REPORT INFORMATION
  Report Type: Spontaneous
  Country: US (occurrence: US)
  Receive Date: 20180429
  Receipt Date: 20180429
  Transmission Date: 20180711
  Serious: Yes (Hospitalization, Disabling)
  Sender: FDA-Public Use
  Company Number: None

PATIENT
  Age: 25 Year
  Sex: Female
  Weight: 51.75 kg

DRUGS (4)
  1. BOTOX [Suspect]
     Active Substance: ONABOTULINUMTOXINA
     Indication: MIGRAINE
     Dosage: ?          OTHER ROUTE:INJECTION?
     Dates: start: 20180411, end: 20180411
  2. ESTRADIOL. [Concomitant]
     Active Substance: ESTRADIOL
  3. SPIRONOLACTONE. [Concomitant]
     Active Substance: SPIRONOLACTONE
  4. RIZATRIPRAN [Concomitant]

REACTIONS (6)
  - Asthenia [None]
  - Hypoaesthesia [None]
  - Dizziness [None]
  - Nausea [None]
  - Anxiety [None]
  - Heart rate increased [None]

NARRATIVE: CASE EVENT DATE: 20180411
